FAERS Safety Report 8828451 (Version 1)
Quarter: 2012Q4

REPORT INFORMATION
  Report Type: 
  Country: FR (occurrence: FR)
  Receive Date: 20121005
  Receipt Date: 20121005
  Transmission Date: 20130627
  Serious: Yes (Hospitalization, Other)
  Sender: FDA-Public Use
  Company Number: FR-ROCHE-GNE277602

PATIENT
  Age: 32 Year
  Sex: Female

DRUGS (1)
  1. ACTILYSE [Suspect]
     Indication: ISCHAEMIC STROKE
     Dosage: 90 mg, UNK
     Route: 042
     Dates: start: 20090208

REACTIONS (2)
  - Angioedema [Recovered/Resolved]
  - Hypofibrinogenaemia [Recovered/Resolved]
